FAERS Safety Report 9407871 (Version 1)
Quarter: 2013Q2

REPORT INFORMATION
  Report Type: Spontaneous
  Country: IT (occurrence: None)
  Receive Date: 20130415
  Receipt Date: 20130415
  Transmission Date: 20140414
  Serious: Yes (Other)
  Sender: FDA-Public Use
  Company Number: TIF2013A00045

PATIENT
  Age: 41 Year
  Sex: Male

DRUGS (3)
  1. LANSOX (LANSOPRAZOLE) [Suspect]
     Dosage: 15 MG (15 MG, 1 IN 1 D), ORAL
     Route: 048
     Dates: start: 20121217, end: 20121219
  2. BRUFEN (IBUPROFEN) [Suspect]
     Indication: TESTICULAR PAIN
     Dosage: 600 MG, 1 IN 1 D), ORAL
     Route: 048
     Dates: start: 20121217, end: 20121219
  3. ISOCEF [Suspect]
     Indication: TESTICULAR PAIN
     Dosage: 400 MG (400 MG, 1 IN 1 D), ORAL
     Route: 048
     Dates: start: 20121217, end: 20121219

REACTIONS (4)
  - Pruritus [None]
  - Urticaria [None]
  - Erythema [None]
  - Palatal oedema [None]
